FAERS Safety Report 8073690-2 (Version None)
Quarter: 2012Q1

REPORT INFORMATION
  Report Type: 
  Country: None (occurrence: None)
  Receive Date: 20120126
  Receipt Date: 20120120
  Transmission Date: 20120608
  Serious: Yes (Other)
  Sender: FDA-Public Use
  Company Number: PHHY2011US77971

PATIENT
  Age: 44 Year
  Sex: Male

DRUGS (1)
  1. COTRIM [Suspect]
     Indication: SKIN INFECTION
     Dosage: 1 DF, BID

REACTIONS (4)
  - PAROTID GLAND ENLARGEMENT [None]
  - PAROTITIS [None]
  - TENDERNESS [None]
  - ERYTHEMA [None]
